FAERS Safety Report 23351885 (Version 1)
Quarter: 2023Q4

REPORT INFORMATION
  Report Type: Spontaneous
  Country: US (occurrence: US)
  Receive Date: 20231229
  Receipt Date: 20231229
  Transmission Date: 20240110
  Serious: Yes (Other)
  Sender: FDA-Public Use
  Company Number: US-INSUD PHARMA-2312US09257

PATIENT

DRUGS (5)
  1. NUVESSA [Suspect]
     Active Substance: METRONIDAZOLE
     Indication: Gastroenteritis Escherichia coli
     Dosage: UNK, RECEIVED 1 DOSE
     Route: 065
  2. NUVESSA [Suspect]
     Active Substance: METRONIDAZOLE
     Indication: Giardiasis
  3. CEFTRIAXONE [Suspect]
     Active Substance: CEFTRIAXONE\CEFTRIAXONE SODIUM
     Indication: Gastroenteritis Escherichia coli
     Dosage: UNK, RECEIVED 1 DOSE
     Route: 065
  4. CEFTRIAXONE [Suspect]
     Active Substance: CEFTRIAXONE\CEFTRIAXONE SODIUM
     Indication: Giardiasis
  5. CARVEDILOL [Concomitant]
     Active Substance: CARVEDILOL
     Indication: Hypertension

REACTIONS (3)
  - Haemolytic uraemic syndrome [Recovered/Resolved]
  - Platelet count decreased [Recovered/Resolved]
  - Haemoglobin decreased [Recovered/Resolved]
